FAERS Safety Report 7129718-7 (Version None)
Quarter: 2010Q4

REPORT INFORMATION
  Report Type: 
  Country: None (occurrence: None)
  Receive Date: 20101130
  Receipt Date: 20101123
  Transmission Date: 20110411
  Serious: Yes (Death)
  Sender: FDA-Public Use
  Company Number: VE-PFIZER INC-2010144344

PATIENT
  Age: 82 Year
  Sex: Male

DRUGS (5)
  1. LIPITOR [Suspect]
     Indication: BLOOD CHOLESTEROL INCREASED
     Dosage: 10 MG, 1X/DAY
     Route: 048
     Dates: start: 20080101
  2. GLUCOFAGE [Concomitant]
     Indication: DIABETES MELLITUS
  3. INSULIN [Concomitant]
     Indication: DIABETES MELLITUS
     Route: 058
  4. LASIX [Concomitant]
     Indication: POLYURIA
     Route: 048
  5. WARFARIN SODIUM [Concomitant]
     Route: 048

REACTIONS (1)
  - CARDIAC FAILURE [None]
